FAERS Safety Report 14318802 (Version 1)
Quarter: 2017Q4

REPORT INFORMATION
  Report Type: Spontaneous
  Country: FR (occurrence: FR)
  Receive Date: 20171222
  Receipt Date: 20171222
  Transmission Date: 20180321
  Serious: Yes (Other)
  Sender: FDA-Public Use
  Company Number: FR-BAYER-2017-243300

PATIENT
  Age: 40 Year
  Sex: Female
  Weight: 55 kg

DRUGS (1)
  1. MIRENA [Suspect]
     Active Substance: LEVONORGESTREL
     Indication: CONTRACEPTION
     Dosage: 20 MCG/24HR, CONT
     Route: 015
     Dates: start: 20170828, end: 20171124

REACTIONS (6)
  - Fatigue [Unknown]
  - Weight increased [Unknown]
  - Suicidal ideation [Unknown]
  - Depression [Unknown]
  - Visual impairment [Unknown]
  - Migraine [Unknown]

NARRATIVE: CASE EVENT DATE: 20170906
